FAERS Safety Report 12962818 (Version 2)
Quarter: 2017Q1

REPORT INFORMATION
  Report Type: Spontaneous
  Country: US (occurrence: US)
  Receive Date: 20161121
  Receipt Date: 20170102
  Transmission Date: 20170428
  Serious: No
  Sender: FDA-Public Use
  Company Number: US-ASTRAZENECA-2016SF19586

PATIENT
  Sex: Female
  Weight: 53.5 kg

DRUGS (1)
  1. PULMICORT FLEXHALER [Suspect]
     Active Substance: BUDESONIDE
     Indication: ATYPICAL PNEUMONIA
     Dosage: 90 MCG ONE PUFF DAILY
     Route: 055
     Dates: start: 20161109

REACTIONS (4)
  - Off label use [Unknown]
  - Product use issue [Unknown]
  - Cough [Unknown]
  - Device failure [Unknown]
